FAERS Safety Report 5524553-5 (Version None)
Quarter: 2007Q4

REPORT INFORMATION
  Report Type: 
  Country: None (occurrence: None)
  Receive Date: 20071123
  Receipt Date: 20071107
  Transmission Date: 20080405
  Serious: Yes (Other)
  Sender: FDA-Public Use
  Company Number: GB-RANBAXY-2007RR-11357

PATIENT

DRUGS (7)
  1. CITALOPRAM HYDROBROMIDE [Suspect]
     Indication: DEPRESSION
     Dosage: 20 MG, QD
     Route: 048
     Dates: start: 20070906, end: 20070912
  2. TRAMADOL HCL [Suspect]
     Indication: BACK PAIN
     Dosage: UNK
     Route: 048
     Dates: start: 20070906, end: 20070912
  3. ASPIRIN TABLETS BP 300MG [Concomitant]
     Dosage: 75 MG, QD
     Route: 048
     Dates: start: 20000101
  4. ATENOLOL TABLETS BP 50MG [Concomitant]
     Dosage: 50 MG, QD
     Route: 048
     Dates: start: 20000101
  5. ATORVASTATIN CALCIUM [Concomitant]
     Indication: MYOCARDIAL ISCHAEMIA
     Dosage: 10 MG, QD
     Route: 048
     Dates: start: 20070906
  6. DICLOFENAC SODIUM TABLETS 25MG [Concomitant]
     Indication: BACK PAIN
     Dosage: 50 MG, TID
     Route: 048
     Dates: start: 20070906
  7. ACETAMINOPHEN [Concomitant]
     Indication: BACK PAIN
     Dosage: 1 G, QID
     Route: 048
     Dates: start: 20070906

REACTIONS (2)
  - EMOTIONAL DISTRESS [None]
  - HALLUCINATION, VISUAL [None]
